FAERS Safety Report 5126220-9 (Version None)
Quarter: 2006Q3

REPORT INFORMATION
  Report Type: 
  Country: None (occurrence: None)
  Receive Date: 20060824
  Receipt Date: 20060501
  Transmission Date: 20061208
  Serious: Yes (Other)
  Sender: FDA-Public Use
  Company Number: WAES 0604USA00973

PATIENT
  Age: 60 Year
  Sex: Male
  Weight: 110.2241 kg

DRUGS (12)
  1. VYTORIN [Suspect]
     Indication: HYPERLIPIDAEMIA
     Dosage: 10-80 MG /DAILY/PO
     Route: 048
     Dates: start: 20060111, end: 20060329
  2. COREG [Concomitant]
  3. NEXIUM [Concomitant]
  4. PLAVIX [Concomitant]
  5. PRINIVIL [Concomitant]
  6. ASPIRIN [Concomitant]
  7. DIGOXIN [Concomitant]
  8. INSULIN GLARGINE [Concomitant]
  9. POTASSIUM CHLORIDE [Concomitant]
  10. PREDNISONE TAB [Concomitant]
  11. SOTALOL HYDROCHLORIDE [Concomitant]
  12. TORSEMIDE [Concomitant]

REACTIONS (2)
  - HEPATITIS [None]
  - PANCREATITIS [None]
